FAERS Safety Report 9238086 (Version 1)
Quarter: 2013Q1

REPORT INFORMATION
  Report Type: Spontaneous
  Country: US (occurrence: None)
  Receive Date: 20121107
  Receipt Date: 20121107
  Transmission Date: 20140127
  Serious: No
  Sender: FDA-Public Use
  Company Number: 2012HGS-003764

PATIENT
  Sex: Female

DRUGS (1)
  1. BENLYSTA [Suspect]
     Route: 041
     Dates: start: 201201

REACTIONS (5)
  - Pain [None]
  - Fatigue [None]
  - Arthralgia [None]
  - Nausea [None]
  - Migraine [None]
